FAERS Safety Report 21614805 (Version 1)
Quarter: 2022Q4

REPORT INFORMATION
  Report Type: Spontaneous
  Country: US (occurrence: US)
  Receive Date: 20221118
  Receipt Date: 20221118
  Transmission Date: 20230112
  Serious: Yes (Other)
  Sender: FDA-Public Use
  Company Number: US-GLAND PHARMA LIMITED-2022US004957

PATIENT
  Age: 29 Year
  Sex: Female

DRUGS (2)
  1. ETOMIDATE [Suspect]
     Active Substance: ETOMIDATE
     Indication: Endotracheal intubation
     Dosage: 20 MG
     Route: 065
  2. SUCCINYLCHOLINE CHLORIDE [Suspect]
     Active Substance: SUCCINYLCHOLINE CHLORIDE
     Indication: Endotracheal intubation
     Dosage: 100 MG
     Route: 065

REACTIONS (1)
  - Cardiac arrest [Recovered/Resolved]
